FAERS Safety Report 26100734 (Version 1)
Quarter: 2025Q4

REPORT INFORMATION
  Report Type: Spontaneous
  Country: US (occurrence: US)
  Receive Date: 20251128
  Receipt Date: 20251128
  Transmission Date: 20260118
  Serious: Yes (Other)
  Sender: MIRUM PHARMACEUTICALS
  Company Number: US-MIRUM PHARMACEUTICALS, INC.-US-MIR-25-00322

PATIENT
  Sex: Female

DRUGS (1)
  1. LIVMARLI [Suspect]
     Active Substance: MARALIXIBAT CHLORIDE
     Indication: Cholangitis sclerosing
     Dosage: 0.5 MILLILITER, BID
     Route: 048

REACTIONS (3)
  - Haematochezia [Recovered/Resolved]
  - Faeces pale [Recovered/Resolved]
  - Off label use [Unknown]

NARRATIVE: CASE EVENT DATE: 20250529
